FAERS Safety Report 6287952-2 (Version None)
Quarter: 2009Q3

REPORT INFORMATION
  Report Type: 
  Country: None (occurrence: None)
  Receive Date: 20090729
  Receipt Date: 20090722
  Transmission Date: 20100115
  Serious: Yes (Life-Threatening, Hospitalization, Other)
  Sender: FDA-Public Use
  Company Number: FR-BRISTOL-MYERS SQUIBB COMPANY-14716526

PATIENT
  Age: 70 Year
  Sex: Male

DRUGS (2)
  1. CARBIDOPA + LEVODOPA [Suspect]
     Indication: PARKINSON'S DISEASE
     Dosage: 1 DF = 200MG-50MG; STOPPED ON 28MAY09 AND RESTARTED ON 30MAY09 AT 2TABS DAILY
     Route: 048
  2. MODOPAR [Suspect]
     Indication: PARKINSON'S DISEASE
     Dosage: 1DF=100MG-25MG,Q4H ALSO TAKEN:50/L2.5MG, 6CAPS/DAY INTERR-28MAY09;REST- 30MAY08:62.5 MG TID
     Route: 048

REACTIONS (7)
  - DEHYDRATION [None]
  - ENCEPHALOPATHY [None]
  - HYPOTENSION [None]
  - HYPOTHERMIA [None]
  - LEFT VENTRICULAR DYSFUNCTION [None]
  - RENAL FAILURE ACUTE [None]
  - SINOATRIAL BLOCK [None]
